FAERS Safety Report 8044424-2 (Version None)
Quarter: 2012Q1

REPORT INFORMATION
  Report Type: 
  Country: None (occurrence: None)
  Receive Date: 20120113
  Receipt Date: 20120103
  Transmission Date: 20120608
  Serious: Yes (Death)
  Sender: FDA-Public Use
  Company Number: US-SHIONOGI, INC-2012000057

PATIENT
  Age: 57 Year
  Sex: Male

DRUGS (7)
  1. VALSARTAN [Concomitant]
     Dosage: UNK
  2. ESOMEPRAZOLE SODIUM [Concomitant]
     Dosage: UNK
  3. METOPROLOL [Concomitant]
     Dosage: UNK
  4. SOLU-MEDROL [Concomitant]
     Dosage: UNK
     Route: 042
  5. ATORVASTATIN [Concomitant]
     Dosage: UNK
  6. EPINEPHRINE [Suspect]
     Dosage: 0.3 MG
     Route: 058
  7. EPINEPHRINE [Suspect]
     Dosage: 3 MG, UNK
     Route: 058

REACTIONS (2)
  - MEDICATION ERROR [None]
  - MYOCARDIAL INFARCTION [None]
